FAERS Safety Report 17405729 (Version 1)
Quarter: 2020Q1

REPORT INFORMATION
  Report Type: Spontaneous
  Country: ES (occurrence: ES)
  Receive Date: 20200212
  Receipt Date: 20200212
  Transmission Date: 20200409
  Serious: Yes (Other)
  Sender: FDA-Public Use
  Company Number: ES-AUROBINDO-AUR-APL-2020-006744

PATIENT
  Age: 83 Year
  Sex: Female

DRUGS (4)
  1. DIGOXINA KERN PHARMA [Interacting]
     Active Substance: DIGOXIN
     Indication: ARRHYTHMIA
  2. ATENOLOL 50 MG FILM COATED TABLETS [Suspect]
     Active Substance: ATENOLOL
     Indication: ARRHYTHMIA
     Dosage: 25 MILLIGRAM, TWO TIMES A DAY
     Route: 048
     Dates: start: 20191205, end: 20200124
  3. AZARGA [Interacting]
     Active Substance: BRINZOLAMIDE\TIMOLOL MALEATE
     Indication: OCULAR HYPERTENSION
     Dosage: 10MG/ML + 5MG/ML
     Route: 047
     Dates: start: 20111223
  4. DIGOXINA KERN PHARMA [Interacting]
     Active Substance: DIGOXIN
     Indication: CARDIAC FAILURE
     Dosage: 0.12 MILLIGRAM, ONCE A DAY
     Route: 048
     Dates: start: 20191205

REACTIONS (2)
  - Fatigue [Recovering/Resolving]
  - Bradycardia [Recovering/Resolving]

NARRATIVE: CASE EVENT DATE: 20200108
